FAERS Safety Report 6742230-X (Version None)
Quarter: 2010Q2

REPORT INFORMATION
  Report Type: 
  Country: None (occurrence: None)
  Receive Date: 20100520
  Receipt Date: 20090328
  Transmission Date: 20101027
  Serious: Yes (Other)
  Sender: FDA-Public Use
  Company Number: 2007015243

PATIENT
  Sex: Female

DRUGS (1)
  1. DEPO-PROVERA [Suspect]

REACTIONS (3)
  - BLOOD TESTOSTERONE DECREASED [None]
  - FEELING ABNORMAL [None]
  - SEXUAL DYSFUNCTION [None]
